FAERS Safety Report 17177840 (Version 2)
Quarter: 2024Q3

REPORT INFORMATION
  Report Type: Spontaneous
  Country: JP (occurrence: JP)
  Receive Date: 20191219
  Receipt Date: 20240705
  Transmission Date: 20241016
  Serious: Yes (Other)
  Sender: TEVA
  Company Number: JP-ASTELLAS-2019US049581

PATIENT
  Age: 43 Year
  Sex: Male

DRUGS (2)
  1. BENDAMUSTINE HYDROCHLORIDE [Suspect]
     Active Substance: BENDAMUSTINE HYDROCHLORIDE
     Indication: Lymphoma
     Dosage: TIME INTERVAL: CYCLICAL
     Route: 042
  2. RITUXIMAB [Concomitant]
     Active Substance: RITUXIMAB
     Indication: Lymphoma
     Route: 041

REACTIONS (2)
  - Cytomegalovirus chorioretinitis [Unknown]
  - Product use in unapproved indication [Unknown]
